FAERS Safety Report 4613749-2 (Version None)
Quarter: 2005Q1

REPORT INFORMATION
  Report Type: 
  Country: None (occurrence: None)
  Receive Date: 20050321
  Receipt Date: 20050311
  Transmission Date: 20050727
  Serious: Yes (Death)
  Sender: FDA-Public Use
  Company Number: JP-MERCK-0503USA02537

PATIENT
  Age: 76 Year
  Sex: Female

DRUGS (3)
  1. DECADRON [Suspect]
     Indication: MULTIPLE MYELOMA
     Route: 048
     Dates: start: 20021210
  2. VINCRISTINE SULFATE [Concomitant]
     Indication: MULTIPLE MYELOMA
     Route: 042
     Dates: start: 20021210
  3. DOXORUBICIN HYDROCHLORIDE [Concomitant]
     Indication: MULTIPLE MYELOMA
     Route: 042
     Dates: start: 20021210

REACTIONS (2)
  - FUNGAL INFECTION [None]
  - SUBARACHNOID HAEMORRHAGE [None]
